FAERS Safety Report 8231926-9 (Version None)
Quarter: 2012Q1

REPORT INFORMATION
  Report Type: 
  Country: None (occurrence: None)
  Receive Date: 20120323
  Receipt Date: 20120308
  Transmission Date: 20120608
  Serious: Yes (Other)
  Sender: FDA-Public Use
  Company Number: GR-ROCHE-1044997

PATIENT
  Age: 63 Year
  Sex: Female

DRUGS (1)
  1. HERCEPTIN [Suspect]
     Indication: BREAST CANCER

REACTIONS (8)
  - DIZZINESS [None]
  - TINNITUS [None]
  - RESPIRATORY DISTRESS [None]
  - EPISTAXIS [None]
  - HEPATIC PAIN [None]
  - CARDIAC DISCOMFORT [None]
  - SOMNOLENCE [None]
  - BLADDER DISORDER [None]
